FAERS Safety Report 9904834 (Version 1)
Quarter: 2013Q2

REPORT INFORMATION
  Report Type: Spontaneous
  Country: US (occurrence: None)
  Receive Date: 20130305
  Receipt Date: 20130305
  Transmission Date: 20140414
  Serious: Yes (Other)
  Sender: FDA-Public Use
  Company Number: 163-21880-12030751

PATIENT
  Age: 65 Year
  Sex: Male
  Weight: 119.3 kg

DRUGS (3)
  1. REVLIMID (LENALIDOMIDE) (15 MILLIGRAM, CAPSULES) [Suspect]
     Indication: PLASMA CELL MYELOMA
     Dosage: 15 MG, DAILY X14DAYS, OFF 7 DAYS, PO?9/2011 - TEMPORARILY INTERRUOTED
     Route: 048
     Dates: start: 201109
  2. VELCADE (UNKNOWN) [Concomitant]
  3. DEXAMETHASONE (DEXAMETHASONE) (UNKNOWN) [Concomitant]

REACTIONS (1)
  - Neuropathy peripheral [None]
